FAERS Safety Report 8023397-2 (Version None)
Quarter: 2012Q1

REPORT INFORMATION
  Report Type: 
  Country: None (occurrence: None)
  Receive Date: 20120104
  Receipt Date: 20111205
  Transmission Date: 20120608
  Serious: Yes (Hospitalization, Other)
  Sender: FDA-Public Use
  Company Number: PHHO2011BR01655

PATIENT
  Sex: Male

DRUGS (3)
  1. TASIGNA [Suspect]
     Indication: GASTROINTESTINAL STROMAL TUMOUR
     Dosage: 800 MG, BID
     Dates: start: 20100226, end: 20110315
  2. TASIGNA [Suspect]
     Dosage: NO TREATMENT RECEIVED
     Dates: start: 20110316, end: 20110404
  3. TASIGNA [Suspect]
     Dosage: 800 MG, BID
     Dates: start: 20110404

REACTIONS (3)
  - NEOPLASM MALIGNANT [None]
  - NODULE [None]
  - THYROID CANCER [None]
